FAERS Safety Report 9125318 (Version 1)
Quarter: 2013Q1

REPORT INFORMATION
  Report Type: Spontaneous
  Country: US (occurrence: US)
  Receive Date: 20130117
  Receipt Date: 20130117
  Transmission Date: 20140127
  Serious: No
  Sender: FDA-Public Use
  Company Number: US-B.I. PHARMACEUTICALS,INC./RIDGEFIELD-2013-BI-00349BP

PATIENT
  Age: 79 Year
  Sex: Female

DRUGS (2)
  1. SPIRIVA [Suspect]
     Indication: BRONCHITIS CHRONIC
     Dosage: 18 MCG
     Route: 055
     Dates: start: 20121228, end: 20121228
  2. ADVAIR [Concomitant]
     Indication: BRONCHITIS
     Dosage: 2 PUF
     Route: 055
     Dates: start: 20121218

REACTIONS (2)
  - Vomiting [Recovered/Resolved]
  - Eye discharge [Not Recovered/Not Resolved]
